FAERS Safety Report 7679782-1 (Version None)
Quarter: 2011Q3

REPORT INFORMATION
  Report Type: 
  Country: None (occurrence: None)
  Receive Date: 20110812
  Receipt Date: 20110801
  Transmission Date: 20111222
  Serious: Yes (Hospitalization)
  Sender: FDA-Public Use
  Company Number: US-JNJFOC-20080200143

PATIENT
  Sex: Female
  Weight: 55.1 kg

DRUGS (8)
  1. INFLIXIMAB [Suspect]
     Route: 042
     Dates: start: 20070531
  2. MESALAMINE [Concomitant]
  3. MVT [Concomitant]
  4. PRILOSEC [Concomitant]
     Dosage: OTC
  5. CULTURELLE [Concomitant]
  6. FOLIC ACID [Concomitant]
  7. INFLIXIMAB [Suspect]
     Indication: CROHN'S DISEASE
     Dosage: TOTAL 5 DOSES
     Route: 042
     Dates: start: 20071010
  8. CALCIUM + VITAMIN D [Concomitant]

REACTIONS (2)
  - CROHN'S DISEASE [None]
  - INFUSION RELATED REACTION [None]
